FAERS Safety Report 6373387-0 (Version None)
Quarter: 2009Q3

REPORT INFORMATION
  Report Type: 
  Country: None (occurrence: None)
  Receive Date: 20090924
  Receipt Date: 20090323
  Transmission Date: 20100115
  Serious: No
  Sender: FDA-Public Use
  Company Number: US-ASTRAZENECA-2009UW07277

PATIENT
  Age: 780 Month
  Sex: Female
  Weight: 59 kg

DRUGS (4)
  1. SEROQUEL [Suspect]
     Route: 048
     Dates: start: 20090319
  2. PROTONIX [Concomitant]
  3. CYMBALTA [Concomitant]
  4. LASIX [Concomitant]

REACTIONS (1)
  - FEELING ABNORMAL [None]
